FAERS Safety Report 5735776-4 (Version None)
Quarter: 2008Q2

REPORT INFORMATION
  Report Type: 
  Country: None (occurrence: None)
  Receive Date: 20080513
  Receipt Date: 20080430
  Transmission Date: 20081010
  Serious: Yes (Other)
  Sender: FDA-Public Use
  Company Number: US-JNJFOC-20080500932

PATIENT
  Sex: Male

DRUGS (6)
  1. IBUPROFEN TABLETS [Suspect]
  2. IBUPROFEN TABLETS [Suspect]
     Indication: DRUG USE FOR UNKNOWN INDICATION
     Dosage: ALMOST EVERY MORNING
  3. CELEBREX [Suspect]
     Indication: DRUG USE FOR UNKNOWN INDICATION
  4. ASPIRIN [Concomitant]
  5. HYDROCODEINE [Concomitant]
  6. ALCOHOL [Concomitant]

REACTIONS (2)
  - STOMACH DISCOMFORT [None]
  - SURGERY [None]
